FAERS Safety Report 7917711-3 (Version None)
Quarter: 2011Q4

REPORT INFORMATION
  Report Type: 
  Country: None (occurrence: None)
  Receive Date: 20111116
  Receipt Date: 20111109
  Transmission Date: 20120403
  Serious: Yes (Other)
  Sender: FDA-Public Use
  Company Number: CH-ALEXION-A201101702

PATIENT
  Sex: Male

DRUGS (6)
  1. SOLIRIS [Suspect]
     Dosage: 900 MG, Q15DAYS
     Route: 042
  2. SOLIRIS [Suspect]
     Indication: PRODUCT USED FOR UNKNOWN INDICATION
     Dosage: UNK
     Route: 042
     Dates: start: 20101103
  3. ATORVASTATIN CALCIUM [Concomitant]
  4. FERROUS SULFATE TAB [Concomitant]
     Dosage: UNK
     Dates: end: 20111104
  5. ACIDE FOLIQUE [Concomitant]
  6. AGOPTON [Concomitant]

REACTIONS (2)
  - ALANINE AMINOTRANSFERASE INCREASED [None]
  - HAEMOLYSIS [None]
